FAERS Safety Report 15776683 (Version 4)
Quarter: 2020Q1

REPORT INFORMATION
  Report Type: Spontaneous
  Country: US (occurrence: US)
  Receive Date: 20181231
  Receipt Date: 20200327
  Transmission Date: 20200409
  Serious: Yes (Other)
  Sender: FDA-Public Use
  Company Number: US-PFIZER INC-2018534095

PATIENT
  Age: 62 Year
  Sex: Female
  Weight: 95.25 kg

DRUGS (2)
  1. ZYVOX [Suspect]
     Active Substance: LINEZOLID
     Indication: STAPHYLOCOCCAL INFECTION
     Dosage: 600 MG, TWICE A DAY (FOR ONE YEAR TAKE 28 DAYS MONTH)
     Route: 048
  2. ZYVOX [Suspect]
     Active Substance: LINEZOLID
     Dosage: 600 MG, TWICE A DAY
     Route: 048
     Dates: start: 20190120

REACTIONS (4)
  - Condition aggravated [Not Recovered/Not Resolved]
  - Product use issue [Unknown]
  - Staphylococcal infection [Not Recovered/Not Resolved]
  - Off label use [Unknown]

NARRATIVE: CASE EVENT DATE: 2016
